FAERS Safety Report 5013925-3 (Version None)
Quarter: 2006Q2

REPORT INFORMATION
  Report Type: 
  Country: None (occurrence: None)
  Receive Date: 20060525
  Receipt Date: 20060520
  Transmission Date: 20061013
  Serious: Yes (Hospitalization)
  Sender: FDA-Public Use
  Company Number: 221625

PATIENT
  Age: 65 Year
  Sex: Female

DRUGS (3)
  1. AVASTIN [Suspect]
     Indication: COLORECTAL CANCER METASTATIC
     Dosage: 550 MG Q3W INTRAVENOUS
     Route: 042
     Dates: start: 20051012
  2. CAPECITABINE         (CAPECITABINE) [Suspect]
     Indication: COLORECTAL CANCER METASTATIC
     Dosage: 1800 MG BID ORAL
     Route: 048
     Dates: start: 20051012
  3. METOCLOPRAMIDE            (METOCLOPRAMIDE HYDROCHLORIDE) [Concomitant]

REACTIONS (3)
  - C-REACTIVE PROTEIN INCREASED [None]
  - POSTOPERATIVE FEVER [None]
  - WHITE BLOOD CELL COUNT DECREASED [None]
